FAERS Safety Report 10386226 (Version 3)
Quarter: 2015Q1

REPORT INFORMATION
  Report Type: Report from Study
  Country: IL (occurrence: IL)
  Receive Date: 20140814
  Receipt Date: 20150107
  Transmission Date: 20150720
  Serious: Yes (Hospitalization)
  Sender: FDA-Public Use
  Company Number: PHHY2014IL098834

PATIENT
  Sex: Female

DRUGS (1)
  1. GILENYA [Suspect]
     Active Substance: FINGOLIMOD HYDROCHLORIDE
     Indication: MULTIPLE SCLEROSIS
     Dosage: 0.5 MG, QOD
     Route: 048
     Dates: start: 20140115

REACTIONS (5)
  - Gait disturbance [Not Recovered/Not Resolved]
  - Off label use [Unknown]
  - Fall [Unknown]
  - Prescribed underdose [Unknown]
  - Contusion [Recovering/Resolving]
